FAERS Safety Report 4917767-6 (Version None)
Quarter: 2006Q1

REPORT INFORMATION
  Report Type: 
  Country: None (occurrence: None)
  Receive Date: 20060215
  Receipt Date: 20060131
  Transmission Date: 20060701
  Serious: Yes (Hospitalization)
  Sender: FDA-Public Use
  Company Number: 2005158176

PATIENT
  Age: 63 Year
  Sex: Male

DRUGS (12)
  1. CAMPTOSAR [Suspect]
     Indication: PANCREATIC CARCINOMA
     Dosage: 170 MG, INTRAVENOUS
     Route: 042
     Dates: start: 20050913, end: 20051027
  2. GEMZAR [Suspect]
     Indication: PANCREATIC CARCINOMA
     Dosage: 1700 MG, INTRAVENOUS
     Route: 042
     Dates: start: 20050913, end: 20051027
  3. LOXONIN (LOXOPROFEN SODIUM) [Concomitant]
  4. CIMETIDINE [Concomitant]
  5. ZOFRAN [Concomitant]
  6. DEXAMETHASONE [Concomitant]
  7. KYTRIL [Concomitant]
  8. DECADRON [Concomitant]
  9. INDISETRON (INDISETRON) [Concomitant]
  10. MAGNESIUM OXIDE (MAGNESIUM OXIDE) [Concomitant]
  11. MORPHINE SULFATE [Concomitant]
  12. NOVAMIN PROCHLORPERAZINE) [Concomitant]

REACTIONS (1)
  - INTERSTITIAL LUNG DISEASE [None]
